FAERS Safety Report 7552181-9 (Version None)
Quarter: 2011Q2

REPORT INFORMATION
  Report Type: 
  Country: None (occurrence: None)
  Receive Date: 20110616
  Receipt Date: 20030214
  Transmission Date: 20111010
  Serious: Yes (Hospitalization)
  Sender: FDA-Public Use
  Company Number: PHBS2002JP02938

PATIENT
  Sex: Male
  Weight: 59 kg

DRUGS (4)
  1. LOCHOLEST [Suspect]
     Indication: HYPERCHOLESTEROLAEMIA
     Dosage: 20 MG/DAY
     Route: 048
     Dates: start: 20000530
  2. FAMOTIDINE [Concomitant]
     Indication: REFLUX OESOPHAGITIS
     Dates: start: 20000530
  3. MARZULENE S [Concomitant]
     Indication: GASTRITIS
  4. SALOBEL [Concomitant]
     Indication: HYPERURICAEMIA
     Dates: start: 20000530

REACTIONS (4)
  - ELECTROCARDIOGRAM ABNORMAL [None]
  - ASTHENIA [None]
  - HYPERTENSION [None]
  - LOSS OF CONSCIOUSNESS [None]
